FAERS Safety Report 13491744 (Version 1)
Quarter: 2017Q2

REPORT INFORMATION
  Report Type: Spontaneous
  Country: US (occurrence: US)
  Receive Date: 20170427
  Receipt Date: 20170427
  Transmission Date: 20170830
  Serious: Yes (Hospitalization)
  Sender: FDA-Public Use
  Company Number: US-SHIRE-US201709366

PATIENT
  Sex: Female

DRUGS (3)
  1. 476 (MESALAZINE/MESALAMINE) [Suspect]
     Active Substance: MESALAMINE
     Dosage: 2500 MG, OTHER(ON DAY 2 TOTAL OF 2.5 GRAMS)
     Route: 048
  2. 476 (MESALAZINE/MESALAMINE) [Suspect]
     Active Substance: MESALAMINE
     Indication: COLITIS ULCERATIVE
     Dosage: 1 MG, OTHER( ON DAY 1 STARTING DOSE 1 MG AND INCREMENTAL DOSES EVERY 30 MINUTES UP TO 500 MG
     Route: 048
  3. 476 (MESALAZINE/MESALAMINE) [Suspect]
     Active Substance: MESALAMINE
     Dosage: 2400 MG, 1X/DAY:QD
     Route: 048

REACTIONS (2)
  - Hypersensitivity [Recovered/Resolved]
  - Dyspnoea [Recovered/Resolved]
